FAERS Safety Report 4874669-1 (Version None)
Quarter: 2006Q1

REPORT INFORMATION
  Report Type: 
  Country: None (occurrence: None)
  Receive Date: 20060106
  Receipt Date: 20050509
  Transmission Date: 20060701
  Serious: Yes (Hospitalization, Disabling)
  Sender: FDA-Public Use
  Company Number: US-MERCK-0505USA01099

PATIENT
  Age: 44 Year
  Sex: Female
  Weight: 63 kg

DRUGS (1)
  1. VIOXX [Suspect]
     Indication: PAIN
     Route: 048
     Dates: start: 19990101

REACTIONS (22)
  - ABDOMINAL PAIN UPPER [None]
  - ABSCESS [None]
  - ARTHRALGIA [None]
  - BRONCHITIS [None]
  - CARDIOVASCULAR DISORDER [None]
  - CHEST PAIN [None]
  - CHRONIC OBSTRUCTIVE PULMONARY DISEASE [None]
  - COUGH [None]
  - DYSPHONIA [None]
  - DYSPNOEA [None]
  - EXPOSURE TO TOXIC AGENT [None]
  - GALLBLADDER DISORDER [None]
  - GASTRIC DISORDER [None]
  - GASTRITIS [None]
  - INTERCOSTAL NEURALGIA [None]
  - MYOCARDIAL INFARCTION [None]
  - NAUSEA [None]
  - NERVE INJURY [None]
  - OVERDOSE [None]
  - PAIN IN EXTREMITY [None]
  - PULMONARY FIBROSIS [None]
  - VOMITING [None]
